FAERS Safety Report 9472750 (Version 2)
Quarter: 2013Q4

REPORT INFORMATION
  Report Type: Spontaneous
  Country: US (occurrence: US)
  Receive Date: 20130823
  Receipt Date: 20131010
  Transmission Date: 20140711
  Serious: Yes (Other)
  Sender: FDA-Public Use
  Company Number: US-PFIZER INC-2013242982

PATIENT
  Age: 78 Year
  Sex: Female
  Weight: 92.97 kg

DRUGS (1)
  1. LYRICA [Suspect]
     Indication: NERVE INJURY
     Dosage: 75 MG, 2X/DAY
     Route: 048
     Dates: start: 20130416

REACTIONS (13)
  - Off label use [Unknown]
  - Weight increased [Unknown]
  - Dysphonia [Unknown]
  - Vision blurred [Unknown]
  - Dry eye [Unknown]
  - Eye pain [Unknown]
  - Dyspnoea [Unknown]
  - Headache [Unknown]
  - Drug ineffective [Unknown]
  - Pain in extremity [Unknown]
  - Dry mouth [Unknown]
  - Gingival pain [Unknown]
  - Gingival swelling [Unknown]
